FAERS Safety Report 18368547 (Version 12)
Quarter: 2022Q2

REPORT INFORMATION
  Report Type: Report from Study
  Country: US (occurrence: US)
  Receive Date: 20201010
  Receipt Date: 20220608
  Transmission Date: 20220721
  Serious: Yes (Hospitalization, Other)
  Sender: FDA-Public Use
  Company Number: US-SHIRE-US202032845

PATIENT
  Age: 51 Year
  Sex: Female
  Weight: 88 kg

DRUGS (21)
  1. HUMAN IMMUNOGLOBULIN G [Suspect]
     Active Substance: HUMAN IMMUNOGLOBULIN G
     Indication: Chronic inflammatory demyelinating polyradiculoneuropathy
     Dosage: 100 GRAM
     Route: 042
     Dates: start: 20140902
  2. HUMAN IMMUNOGLOBULIN G [Suspect]
     Active Substance: HUMAN IMMUNOGLOBULIN G
     Dosage: 100 GRAM, 2/MONTH
     Route: 042
     Dates: start: 20140903
  3. HUMAN IMMUNOGLOBULIN G [Suspect]
     Active Substance: HUMAN IMMUNOGLOBULIN G
     Dosage: 100 GRAM
     Route: 042
     Dates: start: 20140903
  4. LAMOTRIGINE [Concomitant]
     Active Substance: LAMOTRIGINE
     Dosage: 100 MILLIGRAM
     Route: 065
  5. HEPARIN [Concomitant]
     Active Substance: HEPARIN SODIUM
     Dosage: 100 INTERNATIONAL UNIT
     Route: 065
  6. LIDOCAINE\PRILOCAINE [Concomitant]
     Active Substance: LIDOCAINE\PRILOCAINE
     Route: 065
  7. SODIUM CHLORIDE [Concomitant]
     Active Substance: SODIUM CHLORIDE
     Route: 065
  8. EPINEPHRINE [Concomitant]
     Active Substance: EPINEPHRINE
     Route: 065
  9. VENLAFAXINE [Concomitant]
     Active Substance: VENLAFAXINE HYDROCHLORIDE
     Route: 065
  10. LEVOTHYROXINE [Concomitant]
     Active Substance: LEVOTHYROXINE
     Dosage: 75 MICROGRAM
     Route: 065
  11. WARFARIN [Concomitant]
     Active Substance: WARFARIN
     Dosage: 5 MILLIGRAM
     Route: 065
  12. CELLCEPT [Concomitant]
     Active Substance: MYCOPHENOLATE MOFETIL
     Dosage: 500 MILLIGRAM
     Route: 065
  13. HYDROXYZINE [Concomitant]
     Active Substance: HYDROXYZINE HYDROCHLORIDE
     Dosage: 25 MILLIGRAM
     Route: 065
  14. LEVOTHYROXINE SODIUM [Concomitant]
     Active Substance: LEVOTHYROXINE SODIUM
  15. TOPIRAMATE [Concomitant]
     Active Substance: TOPIRAMATE
  16. IRON [Concomitant]
     Active Substance: IRON
  17. B ACTIVE [Concomitant]
  18. VENLAFAXINE HCL [Concomitant]
     Active Substance: VENLAFAXINE HYDROCHLORIDE
  19. PREMARIN [Concomitant]
     Active Substance: ESTROGENS, CONJUGATED
  20. WARFARIN SODIUM [Concomitant]
     Active Substance: WARFARIN SODIUM
  21. LAMOTRIGINE [Concomitant]
     Active Substance: LAMOTRIGINE

REACTIONS (20)
  - Fall [Unknown]
  - Platelet count decreased [Unknown]
  - Viral infection [Unknown]
  - Vertigo [Unknown]
  - Cytomegalovirus infection [Unknown]
  - Peripheral swelling [Unknown]
  - Joint injury [Unknown]
  - Rotator cuff syndrome [Unknown]
  - Ill-defined disorder [Unknown]
  - Therapy interrupted [Unknown]
  - Injection site pruritus [Unknown]
  - Nausea [Unknown]
  - Headache [Unknown]
  - Oropharyngeal pain [Unknown]
  - Lymphadenopathy [Unknown]
  - Fatigue [Unknown]
  - White blood cell count decreased [Unknown]
  - Pruritus [Unknown]
  - Urticaria [Unknown]
  - Product dose omission issue [Unknown]

NARRATIVE: CASE EVENT DATE: 20210407
